FAERS Safety Report 10052077 (Version 2)
Quarter: 2014Q2

REPORT INFORMATION
  Report Type: Spontaneous
  Country: CA (occurrence: CA)
  Receive Date: 20140402
  Receipt Date: 20140415
  Transmission Date: 20141212
  Serious: Yes (Other)
  Sender: FDA-Public Use
  Company Number: CA-ROCHE-1374138

PATIENT
  Sex: Female

DRUGS (2)
  1. CELLCEPT [Suspect]
     Indication: LUPUS NEPHRITIS
     Route: 065
  2. IMURAN [Concomitant]

REACTIONS (2)
  - Pericarditis [Unknown]
  - Haemolytic anaemia [Unknown]
